FAERS Safety Report 11973371 (Version 1)
Quarter: 2016Q1

REPORT INFORMATION
  Report Type: Report from Study
  Country: US (occurrence: US)
  Receive Date: 20160128
  Receipt Date: 20160128
  Transmission Date: 20160526
  Serious: No
  Sender: FDA-Public Use
  Company Number: US-ABBVIE-15K-163-1396115-00

PATIENT
  Age: 55 Year
  Sex: Female

DRUGS (1)
  1. HUMIRA [Suspect]
     Active Substance: ADALIMUMAB
     Indication: RHEUMATOID ARTHRITIS
     Route: 065
     Dates: start: 20150513

REACTIONS (13)
  - Back pain [Unknown]
  - Arthralgia [Unknown]
  - Therapeutic response unexpected [Unknown]
  - Hypersensitivity [Not Recovered/Not Resolved]
  - Laboratory test abnormal [Unknown]
  - Asthenia [Unknown]
  - Dyspnoea [Unknown]
  - Rhinitis allergic [Unknown]
  - Musculoskeletal pain [Recovering/Resolving]
  - Pain in extremity [Unknown]
  - Drug ineffective [Not Recovered/Not Resolved]
  - Arthralgia [Not Recovered/Not Resolved]
  - Cough [Unknown]

NARRATIVE: CASE EVENT DATE: 201505
